FAERS Safety Report 6468498-5 (Version None)
Quarter: 2009Q4

REPORT INFORMATION
  Report Type: 
  Country: None (occurrence: None)
  Receive Date: 20091203
  Receipt Date: 20091202
  Transmission Date: 20100525
  Serious: Yes (Death, Life-Threatening, Hospitalization)
  Sender: FDA-Public Use
  Company Number: US-ROXANE LABORATORIES, INC.-2009-RO-01206RO

PATIENT
  Sex: Female

DRUGS (8)
  1. MORPHINE [Suspect]
     Indication: PAIN
     Dosage: 45 MG
     Route: 048
     Dates: start: 20080911, end: 20081011
  2. MORPHINE [Suspect]
     Route: 048
     Dates: start: 20081011
  3. LORAZEPAM [Suspect]
     Dosage: 3 MG
     Route: 048
  4. CITALOPRAM HYDROBROMIDE [Suspect]
     Dosage: 20 MG
     Route: 048
  5. CITALOPRAM HYDROBROMIDE [Suspect]
     Dosage: 40 MG
     Route: 048
  6. GABAPENTIN [Concomitant]
     Dosage: 900 MG
     Route: 048
  7. GABAPENTIN [Concomitant]
     Dosage: 1800 MG
     Route: 048
  8. TRAZODONE HCL [Concomitant]
     Dosage: 100 MG
     Route: 048

REACTIONS (12)
  - AMNESIA [None]
  - COMA [None]
  - DIARRHOEA [None]
  - DIZZINESS [None]
  - HALLUCINATION [None]
  - HEPATIC FAILURE [None]
  - INCONTINENCE [None]
  - MULTI-ORGAN FAILURE [None]
  - NAUSEA [None]
  - NERVOUSNESS [None]
  - SUICIDAL IDEATION [None]
  - TREMOR [None]
